FAERS Safety Report 11394240 (Version 1)
Quarter: 2015Q3

REPORT INFORMATION
  Report Type: Spontaneous
  Country: US (occurrence: None)
  Receive Date: 20150817
  Receipt Date: 20150817
  Transmission Date: 20151125
  Serious: No
  Sender: FDA-Public Use
  Company Number: None

PATIENT
  Age: 22 Year
  Sex: Female
  Weight: 61.24 kg

DRUGS (9)
  1. CALCIUM [Concomitant]
     Active Substance: CALCIUM
  2. DESMOPRESSIN ACETATE .2 MG GLENMARK [Suspect]
     Active Substance: DESMOPRESSIN ACETATE
     Indication: DIABETES INSIPIDUS
     Dosage: 1 PILL
     Route: 048
     Dates: start: 20150809, end: 20150815
  3. YAZ [Concomitant]
     Active Substance: DROSPIRENONE\ETHINYL ESTRADIOL
  4. SINGULAIR [Concomitant]
     Active Substance: MONTELUKAST SODIUM
  5. ALLEGRA [Concomitant]
     Active Substance: FEXOFENADINE HYDROCHLORIDE
  6. VITAMIN D [Concomitant]
     Active Substance: CHOLECALCIFEROL
  7. ADVAIR HFA [Concomitant]
     Active Substance: FLUTICASONE PROPIONATE\SALMETEROL XINAFOATE
  8. MULTIVITAMIN [Concomitant]
     Active Substance: VITAMINS
  9. IRON [Concomitant]
     Active Substance: IRON

REACTIONS (9)
  - Product quality issue [None]
  - Drug ineffective [None]
  - Muscle swelling [None]
  - Product substitution issue [None]
  - Muscle spasms [None]
  - Muscle tightness [None]
  - Drug effect decreased [None]
  - Headache [None]
  - Nocturia [None]

NARRATIVE: CASE EVENT DATE: 20150811
